FAERS Safety Report 24687728 (Version 1)
Quarter: 2024Q4

REPORT INFORMATION
  Report Type: Spontaneous
  Country: US (occurrence: US)
  Receive Date: 20241202
  Receipt Date: 20241202
  Transmission Date: 20250115
  Serious: No
  Sender: BAYER HEALTHCARE PHARMACEUTICALS INC.
  Company Number: US-BAYER-2024A167209

PATIENT
  Age: 10 Year
  Sex: Female

DRUGS (2)
  1. VITRAKVI [Suspect]
     Active Substance: LAROTRECTINIB
     Dosage: 100 MG
  2. VITRAKVI [Suspect]
     Active Substance: LAROTRECTINIB
     Dosage: 75 MG

REACTIONS (1)
  - Fatigue [Recovering/Resolving]
